FAERS Safety Report 9227286 (Version 1)
Quarter: 2013Q1

REPORT INFORMATION
  Report Type: Spontaneous
  Country: US (occurrence: US)
  Receive Date: 20121012
  Receipt Date: 20121012
  Transmission Date: 20140127
  Serious: Yes (Life-Threatening)
  Sender: FDA-Public Use
  Company Number: 2011SP041484

PATIENT
  Age: 34 Year
  Sex: Female

DRUGS (5)
  1. TEMODAR [Suspect]
     Indication: BRAIN NEOPLASM MALIGNANT
     Dosage: 5 DAYS EVERY 28 DAYS, ORAL.
  2. LEXAPRO (ESCITALOPRAM OXALATE) [Concomitant]
  3. ZYRTEC (CETIRIZINE HYDROCHLORIDE) [Concomitant]
  4. ZONISAMIDE (ZONISAMIDE) UNKNOWN [Concomitant]
  5. ZOLPIDEM TARTRATE (ZOLPIDEM TARTRATE) [Concomitant]

REACTIONS (1)
  - Anaphylactic reaction [None]
